FAERS Safety Report 5340319-3 (Version None)
Quarter: 2007Q2

REPORT INFORMATION
  Report Type: 
  Country: None (occurrence: None)
  Receive Date: 20070531
  Receipt Date: 20070522
  Transmission Date: 20071010
  Serious: Yes (Other)
  Sender: FDA-Public Use
  Company Number: BR-ROCHE-479600

PATIENT
  Age: 53 Year
  Sex: Male
  Weight: 90 kg

DRUGS (6)
  1. XENICAL [Suspect]
     Indication: WEIGHT CONTROL
     Route: 048
     Dates: start: 20020101, end: 20060501
  2. XENICAL [Suspect]
     Route: 048
     Dates: start: 20060101
  3. GINKGO BILOBA [Concomitant]
     Indication: TINNITUS
     Route: 048
  4. PURAN T4 [Concomitant]
     Indication: THYROID DISORDER
     Route: 048
  5. SIMVASTATIN [Concomitant]
     Route: 048
  6. SERTRALINE [Concomitant]
     Route: 048

REACTIONS (1)
  - GALLBLADDER DISORDER [None]
